FAERS Safety Report 4982940-8 (Version None)
Quarter: 2006Q2

REPORT INFORMATION
  Report Type: 
  Country: None (occurrence: None)
  Receive Date: 20060420
  Receipt Date: 20060414
  Transmission Date: 20061013
  Serious: Yes (Death, Hospitalization, Other)
  Sender: FDA-Public Use
  Company Number: 2005068784

PATIENT
  Sex: Male

DRUGS (4)
  1. NEURONTIN [Suspect]
     Indication: NEURALGIA
     Dosage: 300 MG, (300 MG, 1 IN 1 D), ORAL
     Route: 048
     Dates: start: 20040101
  2. INSULIN [Concomitant]
  3. CARDIOVASCULAR SYSTEM DRUGS (CARDIOVASCULAR SYSTEM DRUGS) [Concomitant]
  4. LIDOCAINE [Suspect]
     Indication: THERAPEUTIC PROCEDURE
     Dates: start: 20050427

REACTIONS (6)
  - CARDIAC FAILURE CONGESTIVE [None]
  - DRUG INTERACTION [None]
  - LETHARGY [None]
  - PARTIAL SEIZURES [None]
  - POST PROCEDURAL COMPLICATION [None]
  - TREATMENT NONCOMPLIANCE [None]
